FAERS Safety Report 6633363-7 (Version None)
Quarter: 2010Q1

REPORT INFORMATION
  Report Type: 
  Country: None (occurrence: None)
  Receive Date: 20100312
  Receipt Date: 20100304
  Transmission Date: 20100710
  Serious: Yes (Death, Hospitalization, Other)
  Sender: FDA-Public Use
  Company Number: JP-ABBOTT-09P-087-0607091-00

PATIENT
  Sex: Female
  Weight: 40 kg

DRUGS (14)
  1. HUMIRA [Suspect]
     Indication: RHEUMATOID ARTHRITIS
     Route: 058
     Dates: start: 20090507, end: 20091105
  2. MIZORIBINE [Interacting]
     Indication: DRUG THERAPY
     Dates: end: 20090826
  3. MIZORIBINE [Interacting]
     Dates: start: 20090827, end: 20091118
  4. TIOPRONIN [Concomitant]
     Indication: PROPHYLAXIS
     Dates: end: 20091105
  5. TIOPRONIN [Concomitant]
     Indication: LIVER DISORDER
  6. REBAMIPIDE [Concomitant]
     Indication: GASTRITIS PROPHYLAXIS
     Dates: end: 20091105
  7. LANSOPRAZOLE [Concomitant]
     Indication: PROPHYLAXIS AGAINST GASTROINTESTINAL ULCER
     Dates: end: 20091118
  8. PREDNISOLONE [Concomitant]
     Indication: RHEUMATOID ARTHRITIS
     Dates: end: 20091118
  9. AMLODIPINE [Concomitant]
     Indication: HYPERTENSION
     Dates: end: 20091218
  10. DICLOFENAC SODIUM [Concomitant]
     Indication: RHEUMATOID ARTHRITIS
     Dates: end: 20091118
  11. LOXOPROFEN SODIUM HYDRATE [Concomitant]
     Indication: RHEUMATOID ARTHRITIS
     Dates: end: 20091118
  12. SODIUM RISEDRONATE HYDRATE [Concomitant]
     Indication: OSTEOPOROSIS
     Dates: end: 20091105
  13. DIBUCAINE HYDROCHLORIDE [Concomitant]
     Indication: DRUG USE FOR UNKNOWN INDICATION
  14. AN EXTRACT FROM INFLAMMATORY RABBIT SKIN INOCULATED BY VACCINIA VIRUS [Concomitant]
     Indication: DRUG USE FOR UNKNOWN INDICATION

REACTIONS (13)
  - ASTHENIA [None]
  - BACK PAIN [None]
  - CARCINOEMBRYONIC ANTIGEN INCREASED [None]
  - COMPUTERISED TOMOGRAM ABNORMAL [None]
  - DECREASED APPETITE [None]
  - DRUG INTERACTION [None]
  - INTERSTITIAL LUNG DISEASE [None]
  - MALAISE [None]
  - MALIGNANT ASCITES [None]
  - METASTASIS [None]
  - NEOPLASM [None]
  - PELVIC PAIN [None]
  - PYREXIA [None]
